FAERS Safety Report 7727638-8 (Version None)
Quarter: 2011Q3

REPORT INFORMATION
  Report Type: 
  Country: None (occurrence: None)
  Receive Date: 20110902
  Receipt Date: 20110824
  Transmission Date: 20111222
  Serious: Yes (Hospitalization)
  Sender: FDA-Public Use
  Company Number: US-ASTRAZENECA-2011SE50882

PATIENT
  Age: 63 Year
  Sex: Male

DRUGS (3)
  1. CRESTOR [Suspect]
     Route: 048
  2. NEXIUM [Concomitant]
     Indication: GASTROOESOPHAGEAL REFLUX DISEASE
     Route: 048
  3. THUMBS [Concomitant]
     Route: 048

REACTIONS (5)
  - HEART RATE INCREASED [None]
  - DYSPEPSIA [None]
  - BLOOD PRESSURE INCREASED [None]
  - ADVERSE DRUG REACTION [None]
  - HUNGER [None]
